FAERS Safety Report 7951773-2 (Version None)
Quarter: 2011Q4

REPORT INFORMATION
  Report Type: 
  Country: None (occurrence: None)
  Receive Date: 20111130
  Receipt Date: 20111130
  Transmission Date: 20120403
  Serious: Yes (Hospitalization)
  Sender: FDA-Public Use
  Company Number: None

PATIENT
  Sex: Female
  Weight: 66 kg

DRUGS (2)
  1. CARBOPLATIN [Suspect]
     Dosage: 472 MG
  2. TAXOL [Suspect]
     Dosage: 289 MG

REACTIONS (1)
  - NEUTROPHIL COUNT DECREASED [None]
